FAERS Safety Report 20673978 (Version 1)
Quarter: 2022Q2

REPORT INFORMATION
  Report Type: Spontaneous
  Country: US (occurrence: None)
  Receive Date: 20220404
  Receipt Date: 20220404
  Transmission Date: 20220721
  Serious: Yes (unspecified)
  Sender: FDA-Public Use
  Company Number: None

PATIENT
  Age: 28 Day
  Sex: Male
  Weight: 22.7 kg

DRUGS (1)
  1. KYMRIAH [Suspect]
     Active Substance: TISAGENLECLEUCEL
     Indication: Precursor B-lymphoblastic lymphoma
     Dosage: OTHER FREQUENCY : ONCE;?
     Route: 042
     Dates: start: 20220328

REACTIONS (12)
  - White matter lesion [None]
  - Pyrexia [None]
  - Mental status changes [None]
  - Respiratory alkalosis [None]
  - Seizure [None]
  - Cytokine release syndrome [None]
  - Immune effector cell-associated neurotoxicity syndrome [None]
  - Encephalopathy [None]
  - Musculoskeletal stiffness [None]
  - Eye movement disorder [None]
  - Visual impairment [None]
  - Dyspnoea [None]

NARRATIVE: CASE EVENT DATE: 20220401
